FAERS Safety Report 8958966 (Version 2)
Quarter: 2013Q1

REPORT INFORMATION
  Report Type: Spontaneous
  Country: AU (occurrence: AU)
  Receive Date: 20121212
  Receipt Date: 20130206
  Transmission Date: 20140127
  Serious: Yes (Death, Hospitalization)
  Sender: FDA-Public Use
  Company Number: PHHY2012AU114257

PATIENT
  Age: 90 Year
  Sex: Female

DRUGS (10)
  1. ACLASTA [Suspect]
     Dosage: 5 MG
     Route: 042
     Dates: start: 2010
  2. ACLASTA [Suspect]
     Dosage: 5 MG
     Route: 042
     Dates: start: 20111123
  3. ASPIRIN [Concomitant]
     Dosage: 100 MG, QD
     Route: 048
  4. KARVEZIDE [Concomitant]
     Route: 048
  5. LUMIGAN [Concomitant]
     Dosage: 0.3 MG/ML, 1 DROP AT NIGHT EACH EYE
     Route: 048
  6. OSTELIN VITAMIN D + CALCIUM [Concomitant]
     Dosage: 1 DF, BID
     Route: 048
  7. PANADOL OSTEO [Concomitant]
     Dosage: 2 DF, TID
     Route: 048
  8. PARIET [Concomitant]
     Dosage: 1 DF, IN MORNING
     Route: 048
  9. SYSTANE [Concomitant]
     Dosage: 1 DROP, QID EACH EYE
  10. ZANIDIP [Concomitant]
     Dosage: 20 MG, IN MORNING
     Route: 048

REACTIONS (6)
  - Death [Fatal]
  - Cerebral haemorrhage [Unknown]
  - Haemorrhagic stroke [Unknown]
  - Loss of consciousness [Unknown]
  - Cardiomegaly [Unknown]
  - Blood pressure systolic increased [Unknown]
